APPROVED DRUG PRODUCT: SYNALAR
Active Ingredient: FLUOCINOLONE ACETONIDE
Strength: 0.01%
Dosage Form/Route: CREAM;TOPICAL
Application: N012787 | Product #004 | TE Code: AT
Applicant: MEDIMETRIKS PHARMACEUTICALS INC
Approved: Approved Prior to Jan 1, 1982 | RLD: Yes | RS: Yes | Type: RX